FAERS Safety Report 10567511 (Version 2)
Quarter: 2014Q4

REPORT INFORMATION
  Report Type: Spontaneous
  Country: US (occurrence: None)
  Receive Date: 20141014
  Receipt Date: 20141029
  Transmission Date: 20150529
  Serious: Yes (Death, Other)
  Sender: FDA-Public Use
  Company Number: GBI002582

PATIENT
  Age: 74 Year
  Sex: Female
  Weight: 67 kg

DRUGS (4)
  1. ASPIRIN. [Concomitant]
     Active Substance: ASPIRIN
  2. WARFARIN [Concomitant]
     Active Substance: WARFARIN
  3. FACTOR IX COMPLEX [Suspect]
     Active Substance: FACTOR IX COMPLEX
     Indication: PROCOAGULANT THERAPY
     Route: 042
     Dates: start: 20130403
  4. CORTICOSTEROIDS [Concomitant]
     Active Substance: CORTICOSTEROID NOS

REACTIONS (6)
  - Hypoxia [None]
  - Haemodynamic instability [None]
  - Aortic thrombosis [None]
  - Cardiac arrest [None]
  - Intracardiac thrombus [None]
  - Myocardial infarction [None]

NARRATIVE: CASE EVENT DATE: 20130403
